FAERS Safety Report 9228643 (Version 3)
Quarter: 2013Q2

REPORT INFORMATION
  Report Type: Report from Study
  Country: DK (occurrence: DK)
  Receive Date: 20130412
  Receipt Date: 20130521
  Transmission Date: 20140414
  Serious: Yes (Hospitalization, Disabling, Other)
  Sender: FDA-Public Use
  Company Number: DK-ASTELLAS-2013EU003282

PATIENT
  Sex: 0

DRUGS (13)
  1. ENZALUTAMIDE [Suspect]
     Dosage: 4 DF, UNKNOWN/D
     Route: 065
     Dates: start: 20121218, end: 20130311
  2. FENTANYL [Interacting]
     Dosage: UNK
     Route: 065
  3. NAPROXEN [Concomitant]
     Dosage: 500 MG, BID
     Route: 065
  4. LYRICA [Concomitant]
     Dosage: 150 MG, TID
     Route: 065
     Dates: start: 20130214
  5. CATAPRESAN                         /00171101/ [Concomitant]
     Dosage: 25 MG, UNKNOWN/D
     Route: 065
     Dates: start: 20130214
  6. HJERTEMAGNYL                       /00228701/ [Concomitant]
     Dosage: 75 MG, UID/QD
     Route: 065
     Dates: start: 20130214
  7. PAMOL [Concomitant]
     Dosage: 500 MG, UNKNOWN/D
     Route: 065
     Dates: start: 20130214
  8. CRESTOR [Concomitant]
     Dosage: 10 MG, UID/QD
     Route: 065
     Dates: start: 20130214
  9. LANSOPRAZOL [Concomitant]
     Dosage: 30 MG, UNKNOWN/D
     Route: 065
     Dates: start: 20130214
  10. UNIKALK BASIC [Concomitant]
     Dosage: UNK
     Route: 065
     Dates: start: 20130214
  11. PREDNISOLON                        /00016201/ [Concomitant]
     Dosage: 10 MG, BID
     Route: 065
     Dates: start: 20130214
  12. EMPERAL [Concomitant]
     Dosage: 10 MG, PRN
     Route: 065
     Dates: start: 20130214
  13. MORFIN                             /00036301/ [Concomitant]
     Dosage: 10 MG, UNKNOWN/D
     Route: 065
     Dates: start: 20130214

REACTIONS (7)
  - Drug interaction [Unknown]
  - Drug level increased [Unknown]
  - Vomiting [Recovered/Resolved]
  - Anxiety disorder [Recovered/Resolved]
  - Hot flush [Recovering/Resolving]
  - Tremor [Recovering/Resolving]
  - Pain [Recovered/Resolved]
